FAERS Safety Report 10753536 (Version 2)
Quarter: 2015Q1

REPORT INFORMATION
  Report Type: Spontaneous
  Country: KR (occurrence: KR)
  Receive Date: 20150131
  Receipt Date: 20150203
  Transmission Date: 20150721
  Serious: Yes (Other)
  Sender: FDA-Public Use
  Company Number: PHHY2015KR011109

PATIENT
  Age: 13 Month
  Sex: Female

DRUGS (2)
  1. PREDNISOLONE. [Suspect]
     Active Substance: PREDNISOLONE
     Indication: PRODUCT USED FOR UNKNOWN INDICATION
     Route: 061
  2. TOSUFLOXACIN [Interacting]
     Active Substance: TOSUFLOXACIN TOSYLATE
     Indication: PROPHYLAXIS
     Dosage: 8 OT, QD
     Route: 061

REACTIONS (3)
  - Corneal epithelium defect [Recovered/Resolved]
  - Drug interaction [Unknown]
  - Corneal deposits [Recovered/Resolved]
